FAERS Safety Report 23386934 (Version 1)
Quarter: 2024Q1

REPORT INFORMATION
  Report Type: Spontaneous
  Country: US (occurrence: None)
  Receive Date: 20240109
  Receipt Date: 20240109
  Transmission Date: 20240410
  Serious: Yes (Other)
  Sender: FDA-Public Use
  Company Number: None

PATIENT
  Sex: Male

DRUGS (6)
  1. CYCLOSPORINE [Suspect]
     Active Substance: CYCLOSPORINE
     Indication: Product used for unknown indication
     Dosage: 25 MG ORAL??TAKE 3 CAPSULES (75 MG) BY MOUTH EVERY MORNING AND 2 CAPSULES (50 MG) EVERY EVENING?
     Route: 048
     Dates: start: 20230525
  2. CYCLOSPORINE [Suspect]
     Active Substance: CYCLOSPORINE
     Dosage: FREQUENCY : AS DIRECTED;?
     Route: 048
  3. LOSARTAN POTASSIUM [Concomitant]
     Active Substance: LOSARTAN POTASSIUM
  4. ROSVASTATIN [Concomitant]
  5. ALLOPURINOL [Concomitant]
  6. METFORMIN [Concomitant]

REACTIONS (4)
  - Vomiting [None]
  - Retching [None]
  - Chest pain [None]
  - Muscle tightness [None]
